FAERS Safety Report 23768581 (Version 2)
Quarter: 2024Q2

REPORT INFORMATION
  Report Type: Spontaneous
  Country: DK (occurrence: DK)
  Receive Date: 20240422
  Receipt Date: 20240506
  Transmission Date: 20240715
  Serious: Yes (Other)
  Sender: FDA-Public Use
  Company Number: DK-002147023-NVSC2024DK083620

PATIENT
  Age: 49 Year
  Sex: Female

DRUGS (2)
  1. KESIMPTA [Suspect]
     Active Substance: OFATUMUMAB
     Indication: Multiple sclerosis
     Dosage: 20 MG, Q4W
     Route: 058
     Dates: start: 20230707
  2. BACLOFEN [Concomitant]
     Active Substance: BACLOFEN
     Indication: Muscle spasticity
     Dosage: 10 MG (30 MG X2)
     Route: 048
     Dates: start: 2020

REACTIONS (10)
  - Myocardial infarction [Unknown]
  - Herpes zoster [Unknown]
  - Rash [Unknown]
  - Erythema [Unknown]
  - Blister [Unknown]
  - Pain [Unknown]
  - Ulcer [Unknown]
  - Asthenia [Unknown]
  - Fatigue [Unknown]
  - Sensory disturbance [Unknown]

NARRATIVE: CASE EVENT DATE: 20240313
